FAERS Safety Report 13292191 (Version 2)
Quarter: 2017Q2

REPORT INFORMATION
  Report Type: Spontaneous
  Country: US (occurrence: US)
  Receive Date: 20170303
  Receipt Date: 20170425
  Transmission Date: 20170830
  Serious: Yes (Other)
  Sender: FDA-Public Use
  Company Number: US-TAIHO ONCOLOGY INC-EU-2017-00360

PATIENT
  Age: 57 Year
  Sex: Male

DRUGS (6)
  1. LONSURF [Suspect]
     Active Substance: TIPIRACIL HYDROCHLORIDE\TRIFLURIDINE
     Indication: COLON CANCER
     Route: 048
     Dates: start: 20161126, end: 201701
  2. INTRON A [Suspect]
     Active Substance: INTERFERON ALFA-2B
     Indication: SECONDARY IMMUNODEFICIENCY
     Route: 058
     Dates: start: 20160930
  3. CISPLATIN. [Suspect]
     Active Substance: CISPLATIN
  4. PLATINUM [Suspect]
     Active Substance: PLATINUM
     Indication: SECONDARY IMMUNODEFICIENCY
     Dosage: NI
  5. PACLITAXEL. [Suspect]
     Active Substance: PACLITAXEL
  6. LISINOPRIL. [Concomitant]
     Active Substance: LISINOPRIL
     Dosage: NI

REACTIONS (6)
  - Insomnia [Recovered/Resolved]
  - Bedridden [Recovered/Resolved]
  - Polyuria [Recovered/Resolved]
  - Haematochezia [Recovered/Resolved]
  - Hallucination [Recovered/Resolved]
  - Constipation [Recovered/Resolved]

NARRATIVE: CASE EVENT DATE: 201701
